FAERS Safety Report 11228989 (Version 1)
Quarter: 2015Q2

REPORT INFORMATION
  Report Type: Spontaneous
  Country: TW (occurrence: TW)
  Receive Date: 20150630
  Receipt Date: 20150630
  Transmission Date: 20150821
  Serious: Yes (Hospitalization)
  Sender: FDA-Public Use
  Company Number: TW-GE HEALTHCARE MEDICAL DIAGNOSTICS-OMPQ-PR-1506S-0943

PATIENT
  Age: 78 Year
  Sex: Male

DRUGS (11)
  1. OMNIPAQUE [Suspect]
     Active Substance: IOHEXOL
     Indication: PRODUCT USED FOR UNKNOWN INDICATION
     Route: 042
     Dates: start: 20150504, end: 20150504
  2. TRITACE [Concomitant]
     Active Substance: RAMIPRIL
  3. LIVALO [Concomitant]
     Active Substance: PITAVASTATIN CALCIUM
  4. SCAMIN [Concomitant]
  5. OMNIPAQUE [Suspect]
     Active Substance: IOHEXOL
     Indication: DIAGNOSTIC PROCEDURE
  6. FLUIMUCIL [Concomitant]
     Active Substance: ACETYLCYSTEINE
  7. SENNOSIDE [Concomitant]
     Active Substance: SENNOSIDES
  8. MGO [Concomitant]
  9. PROPHYLLINE [Concomitant]
  10. BOKEY [Concomitant]
  11. CEPHADOL [Concomitant]
     Active Substance: DIPHENIDOL HYDROCHLORIDE

REACTIONS (12)
  - Hepatitis fulminant [Recovering/Resolving]
  - Hepatic encephalopathy [Recovering/Resolving]
  - Pneumonia [Recovering/Resolving]
  - Haemoptysis [Recovering/Resolving]
  - Acute respiratory failure [Recovering/Resolving]
  - Cardiac failure [Recovering/Resolving]
  - Hepatorenal syndrome [Recovering/Resolving]
  - Thrombocytopenia [Recovering/Resolving]
  - Atrial fibrillation [Recovering/Resolving]
  - Anaemia [Recovering/Resolving]
  - Disseminated intravascular coagulation [Recovering/Resolving]
  - Hepatitis E [Recovering/Resolving]

NARRATIVE: CASE EVENT DATE: 201505
